FAERS Safety Report 23143684 (Version 2)
Quarter: 2023Q4

REPORT INFORMATION
  Report Type: Spontaneous
  Country: CN (occurrence: CN)
  Receive Date: 20231103
  Receipt Date: 20231116
  Transmission Date: 20240110
  Serious: Yes (Other)
  Sender: FDA-Public Use
  Company Number: CN-ELI_LILLY_AND_COMPANY-CN202310016241

PATIENT
  Age: 67 Year
  Sex: Female
  Weight: 55 kg

DRUGS (2)
  1. TERIPARATIDE [Suspect]
     Active Substance: TERIPARATIDE
     Indication: Osteoporosis
     Dosage: UNK UNK, UNKNOWN
     Route: 065
  2. MIACALCIC [Concomitant]
     Active Substance: CALCITONIN SALMON
     Indication: Product used for unknown indication

REACTIONS (5)
  - Hepatic cirrhosis [Unknown]
  - Fracture [Unknown]
  - Angina pectoris [Recovered/Resolved]
  - Laboratory test abnormal [Unknown]
  - Hepatic pain [Recovered/Resolved]

NARRATIVE: CASE EVENT DATE: 20231024
